FAERS Safety Report 25923544 (Version 2)
Quarter: 2025Q4

REPORT INFORMATION
  Report Type: Report from Study
  Country: US (occurrence: US)
  Receive Date: 20251015
  Receipt Date: 20251120
  Transmission Date: 20260118
  Serious: Yes (Other)
  Sender: ABBVIE
  Company Number: US-ABBVIE-6502824

PATIENT
  Age: 74 Year
  Sex: Male

DRUGS (2)
  1. RINVOQ [Suspect]
     Active Substance: UPADACITINIB
     Indication: Dermatitis atopic
     Route: 048
     Dates: start: 20250224
  2. CLOBETASOL [Concomitant]
     Active Substance: CLOBETASOL
     Indication: Product used for unknown indication
     Route: 061
     Dates: start: 20250617

REACTIONS (6)
  - Malignant melanoma [Recovered/Resolved]
  - Actinic keratosis [Unknown]
  - Lichenoid keratosis [Unknown]
  - Blood triglycerides increased [Unknown]
  - Haematocrit increased [Unknown]
  - Dermatitis [Unknown]

NARRATIVE: CASE EVENT DATE: 20250601
